FAERS Safety Report 7634135-7 (Version None)
Quarter: 2011Q3

REPORT INFORMATION
  Report Type: 
  Country: None (occurrence: None)
  Receive Date: 20110725
  Receipt Date: 20110721
  Transmission Date: 20111222
  Serious: Yes (Other)
  Sender: FDA-Public Use
  Company Number: US-VERTEX PHARMACEUTICALS INC.-AE-2011-000556

PATIENT
  Sex: Male

DRUGS (3)
  1. INCIVEK [Suspect]
     Indication: HEPATITIS C
     Route: 048
     Dates: start: 20110101
  2. PEG [Concomitant]
     Indication: HEPATITIS C
     Dates: start: 20110101
  3. RIBA [Concomitant]
     Indication: HEPATITIS C
     Dates: start: 20110101

REACTIONS (1)
  - COLON CANCER [None]
